FAERS Safety Report 20603804 (Version 3)
Quarter: 2022Q2

REPORT INFORMATION
  Report Type: Report from Study
  Country: ES (occurrence: None)
  Receive Date: 20220316
  Receipt Date: 20220405
  Transmission Date: 20220720
  Serious: Yes (Hospitalization)
  Sender: FDA-Public Use
  Company Number: ES-ROCHE-2924599

PATIENT
  Age: 54 Year
  Sex: Male
  Weight: 66 kg

DRUGS (12)
  1. TRASTUZUMAB [Suspect]
     Active Substance: TRASTUZUMAB
     Indication: Gastric cancer
     Dosage: LAST ADMINISTRATION BEFORE SAE: 02/SEP/2021
     Route: 041
     Dates: start: 20210421
  2. TRASTUZUMAB [Suspect]
     Active Substance: TRASTUZUMAB
     Dosage: LAST ADMINISTRATION BEFORE SAE: 02/SEP/2021
     Route: 041
     Dates: start: 20210422
  3. PERTUZUMAB [Suspect]
     Active Substance: PERTUZUMAB
     Indication: Gastric cancer
     Dosage: LAST ADMINISTRATION BEFORE SAE: 02/SEP/2021
     Route: 042
     Dates: start: 20210421
  4. PERTUZUMAB [Suspect]
     Active Substance: PERTUZUMAB
     Dosage: LAST ADMINISTRATION BEFORE SAE: 02/SEP/2021
     Route: 042
     Dates: start: 20210422
  5. FLUOROURACIL [Suspect]
     Active Substance: FLUOROURACIL
     Indication: Gastric cancer
     Dosage: LAST ADMINISTRATION BEFORE SAE: 09/SEP/2021
     Route: 042
     Dates: start: 20210421
  6. FLUOROURACIL [Suspect]
     Active Substance: FLUOROURACIL
     Dosage: LAST ADMINISTRATION BEFORE SAE: 09/SEP/2021
     Route: 042
     Dates: start: 20210422
  7. DOCETAXEL [Suspect]
     Active Substance: DOCETAXEL
     Indication: Gastric cancer
     Dosage: LAST ADMINISTRATION BEFORE SAE: 09/SEP/2021
     Route: 042
     Dates: start: 20210421
  8. DOCETAXEL [Suspect]
     Active Substance: DOCETAXEL
     Dosage: LAST ADMINISTRATION BEFORE SAE: 09/SEP/2021
     Route: 042
     Dates: start: 20210422
  9. OXALIPLATIN [Suspect]
     Active Substance: OXALIPLATIN
     Indication: Gastric cancer
     Dosage: LAST ADMINISTRATION BEFORE SAE: 09/SEP/2021
     Route: 042
     Dates: start: 20210421
  10. OXALIPLATIN [Suspect]
     Active Substance: OXALIPLATIN
     Dosage: LAST ADMINISTRATION BEFORE SAE: 09/SEP/2021
     Route: 042
     Dates: start: 20210422
  11. LEUCOVORIN [Suspect]
     Active Substance: LEUCOVORIN
     Indication: Gastric cancer
     Dosage: LAST ADMINISTRATION BEFORE SAE: 09/SEP/2021
     Route: 042
     Dates: start: 20210421
  12. LEUCOVORIN [Suspect]
     Active Substance: LEUCOVORIN
     Dosage: LAST ADMINISTRATION BEFORE SAE: 09/SEP/2021
     Route: 042
     Dates: start: 20210422

REACTIONS (3)
  - Syncope [Recovered/Resolved]
  - Diarrhoea [Recovered/Resolved]
  - Dehydration [Recovered/Resolved]

NARRATIVE: CASE EVENT DATE: 20210926
